FAERS Safety Report 6872031-3 (Version None)
Quarter: 2010Q3

REPORT INFORMATION
  Report Type: 
  Country: None (occurrence: None)
  Receive Date: 20100723
  Receipt Date: 20100712
  Transmission Date: 20110219
  Serious: Yes (Other)
  Sender: FDA-Public Use
  Company Number: KR-PFIZER INC-2010086838

PATIENT
  Sex: Male

DRUGS (2)
  1. LYRICA [Suspect]
     Indication: PAIN
     Dosage: 300 MG/DAY
     Route: 048
     Dates: start: 20100101
  2. LYRICA [Suspect]
     Dosage: 150 MG, DAILY
     Dates: start: 20100101

REACTIONS (3)
  - DRUG INEFFECTIVE [None]
  - NERVE BLOCK [None]
  - PAIN [None]
